FAERS Safety Report 8478835-8 (Version None)
Quarter: 2012Q2

REPORT INFORMATION
  Report Type: 
  Country: None (occurrence: None)
  Receive Date: 20120621
  Receipt Date: 20120612
  Transmission Date: 20120825
  Serious: Yes (Hospitalization, Other)
  Sender: FDA-Public Use
  Company Number: DSA_57931_2012

PATIENT

DRUGS (5)
  1. FLUOROURACIL [Suspect]
     Indication: COLORECTAL CANCER STAGE III
     Dosage: (2400 MG/M2 INTRA-ARTERIAL)
     Route: 013
  2. DEXAMETHASONE [Concomitant]
  3. CALCIUN FOLINATE(CALCIUM FOLINATE) [Suspect]
     Indication: COLORECTAL CANCER STAGE III
     Dosage: (85 MG/M2 9EVERY CYCLE) INTRA-ARTERIAL)
     Route: 013
  4. LEUCOVORIN CALCIUM [Suspect]
     Indication: COLORECTAL CANCER STAGE III
     Dosage: (200 MG/M2 INTRA-ARTERIAL)
     Route: 013
  5. GRANISETRON [Concomitant]

REACTIONS (1)
  - ANAEMIA [None]
